FAERS Safety Report 13599203 (Version 2)
Quarter: 2017Q2

REPORT INFORMATION
  Report Type: Report from Study
  Country: US (occurrence: US)
  Receive Date: 20170531
  Receipt Date: 20170616
  Transmission Date: 20170830
  Serious: Yes (Death, Hospitalization)
  Sender: FDA-Public Use
  Company Number: US-ACTELION-A-NJ2016-147319

PATIENT
  Age: 78 Year
  Sex: Male

DRUGS (3)
  1. OFEV [Concomitant]
     Active Substance: NINTEDANIB
     Dosage: 150 MG, BID
  2. OPSUMIT [Suspect]
     Active Substance: MACITENTAN
     Indication: PULMONARY ARTERIAL HYPERTENSION
     Dosage: 10 MG, QD
     Route: 048
     Dates: start: 20151220
  3. ADEMPAS [Concomitant]
     Active Substance: RIOCIGUAT
     Dosage: 2.5 MG, UNK
     Dates: start: 20161117, end: 20170606

REACTIONS (5)
  - Dyspnoea [Not Recovered/Not Resolved]
  - Death [Fatal]
  - Cardiac pacemaker insertion [Not Recovered/Not Resolved]
  - Pulmonary oedema [Not Recovered/Not Resolved]
  - Pulmonary hypertension [Unknown]

NARRATIVE: CASE EVENT DATE: 20170606
